FAERS Safety Report 15385507 (Version 1)
Quarter: 2018Q4

REPORT INFORMATION
  Report Type: Spontaneous
  Country: FR (occurrence: FR)
  Receive Date: 20180914
  Receipt Date: 20180914
  Transmission Date: 20190204
  Serious: Yes (Death, Other)
  Sender: FDA-Public Use
  Company Number: FR-AUROBINDO-AUR-APL-2018-045504

PATIENT
  Age: 74 Year
  Sex: Female
  Weight: 70 kg

DRUGS (2)
  1. CARBOPLATIN 10MG/ML SOLUTION FOR INFUSION [Suspect]
     Active Substance: CARBOPLATIN
     Indication: PRODUCT USED FOR UNKNOWN INDICATION
     Route: 042
     Dates: start: 20141226
  2. CARBOPLATIN 10MG/ML SOLUTION FOR INFUSION [Suspect]
     Active Substance: CARBOPLATIN
     Dosage: 330 MILLIGRAM/SQ. METER
     Route: 042
     Dates: start: 20141121, end: 20141226

REACTIONS (3)
  - Hypersensitivity [Fatal]
  - Shock [Fatal]
  - Cardiac arrest [Fatal]

NARRATIVE: CASE EVENT DATE: 20141226
